FAERS Safety Report 19157915 (Version 1)
Quarter: 2021Q2

REPORT INFORMATION
  Report Type: Report from Study
  Country: FR (occurrence: FR)
  Receive Date: 20210420
  Receipt Date: 20210420
  Transmission Date: 20210717
  Serious: Yes (Other)
  Sender: FDA-Public Use
  Company Number: FR-MYLANLABS-2021M1023072

PATIENT
  Age: 21 Year
  Sex: Male

DRUGS (5)
  1. LYSODREN [Interacting]
     Active Substance: MITOTANE
     Indication: ADRENAL REST TUMOUR OF THE TESTIS
     Dosage: 1 GRAM, QD
     Route: 048
  2. HYDROCORTISONE. [Interacting]
     Active Substance: HYDROCORTISONE
     Indication: ADRENOGENITAL SYNDROME
  3. HYDROCORTISONE. [Suspect]
     Active Substance: HYDROCORTISONE
     Indication: ADRENAL REST TUMOUR OF THE TESTIS
     Dosage: 25 MILLIGRAM, QD
     Route: 065
  4. FLUDROCORTISONE [Interacting]
     Active Substance: FLUDROCORTISONE
     Indication: ADRENAL REST TUMOUR OF THE TESTIS
     Dosage: 50 MICROGRAM, QD
     Route: 065
  5. FLUDROCORTISONE [Interacting]
     Active Substance: FLUDROCORTISONE
     Indication: ADRENOGENITAL SYNDROME

REACTIONS (3)
  - Drug ineffective [Unknown]
  - Adrenal insufficiency [Unknown]
  - Drug interaction [Unknown]
